FAERS Safety Report 5442439-1 (Version None)
Quarter: 2007Q3

REPORT INFORMATION
  Report Type: 
  Country: None (occurrence: None)
  Receive Date: 20070830
  Receipt Date: 20070801
  Transmission Date: 20080115
  Serious: Yes (Death)
  Sender: FDA-Public Use
  Company Number: 07-192

PATIENT
  Age: 68 Year
  Sex: Male

DRUGS (2)
  1. CITALOPRAM HYDROBROMIDE [Suspect]
     Indication: ANXIETY
     Dosage: 20 MG DAILY X 7 DAYS THEN 1/2 TABLET DAILY X 2 DAYS
     Dates: start: 20070721, end: 20070730
  2. TOPROL-XL [Concomitant]

REACTIONS (4)
  - ANOREXIA [None]
  - COMPLETED SUICIDE [None]
  - DYSARTHRIA [None]
  - SOMNOLENCE [None]
